FAERS Safety Report 4281873-2 (Version None)
Quarter: 2004Q1

REPORT INFORMATION
  Report Type: 
  Country: None (occurrence: None)
  Receive Date: 20040112
  Receipt Date: 20030429
  Transmission Date: 20041129
  Serious: Yes (Hospitalization, Other)
  Sender: FDA-Public Use
  Company Number: NSADSS2002016461

PATIENT
  Age: 66 Year
  Sex: Male

DRUGS (1)
  1. REOPRO [Suspect]
     Indication: CORONARY ARTERY DISEASE
     Dosage: 1 IN 1 AS NECESSARY, INTRAVENOUS DRIP
     Route: 041
     Dates: start: 19990603, end: 19990603

REACTIONS (1)
  - HAEMORRHAGE INTRACRANIAL [None]
